FAERS Safety Report 9473589 (Version 1)
Quarter: 2013Q3

REPORT INFORMATION
  Report Type: Spontaneous
  Country: US (occurrence: US)
  Receive Date: 20130823
  Receipt Date: 20130823
  Transmission Date: 20140515
  Serious: Yes (Hospitalization)
  Sender: FDA-Public Use
  Company Number: US-BAYER-2013-101908

PATIENT
  Age: 43 Year
  Sex: Female

DRUGS (18)
  1. YAZ [Suspect]
  2. COZAAR [Concomitant]
  3. TOPROL XL [Concomitant]
  4. TRAMADOL [Concomitant]
  5. ZANTAC [Concomitant]
  6. TIZANIDINE [Concomitant]
  7. ACIPHEX [Concomitant]
  8. XANAX [Concomitant]
  9. ZETIA [Concomitant]
  10. LYRICA [Concomitant]
  11. EFFEXOR [Concomitant]
  12. TRAZODONE [Concomitant]
  13. PHENERGAN [Concomitant]
  14. LIDODERM [Concomitant]
  15. ROXICODONE [Concomitant]
  16. RANITIDINE [Concomitant]
  17. PROMETHAZINE [Concomitant]
  18. OXYCODONE [Concomitant]

REACTIONS (2)
  - Pulmonary embolism [None]
  - Deep vein thrombosis [Recovering/Resolving]
